FAERS Safety Report 5371815-0 (Version None)
Quarter: 2007Q2

REPORT INFORMATION
  Report Type: 
  Country: None (occurrence: None)
  Receive Date: 20070627
  Receipt Date: 20070620
  Transmission Date: 20071010
  Serious: Yes (Hospitalization)
  Sender: FDA-Public Use
  Company Number: IT-AVENTIS-200715568GDDC

PATIENT
  Age: 11 Month
  Sex: Male
  Weight: 8.5 kg

DRUGS (5)
  1. HYDROCORTISONE [Suspect]
  2. HYDROCORTISONE [Suspect]
  3. HYDROCORTISONE [Suspect]
  4. HYDROCORTISONE [Suspect]
  5. CORTICOSTEROIDS [Concomitant]

REACTIONS (1)
  - LEFT VENTRICULAR HYPERTROPHY [None]
